FAERS Safety Report 12921634 (Version 2)
Quarter: 2016Q4

REPORT INFORMATION
  Report Type: Report from Study
  Country: US (occurrence: US)
  Receive Date: 20161108
  Receipt Date: 20161117
  Transmission Date: 20170207
  Serious: Yes (Hospitalization, Disabling, Other)
  Sender: FDA-Public Use
  Company Number: US-GILEAD-2016-0242113

PATIENT
  Age: 49 Year
  Sex: Female
  Weight: 105.21 kg

DRUGS (22)
  1. ALBUTEROL                          /00139501/ [Concomitant]
     Active Substance: ALBUTEROL
  2. FUROSEMIDE. [Concomitant]
     Active Substance: FUROSEMIDE
  3. DILTIAZEM. [Concomitant]
     Active Substance: DILTIAZEM
  4. AMBRISENTAN [Suspect]
     Active Substance: AMBRISENTAN
     Indication: ASTHMA
  5. FOLIC ACID. [Concomitant]
     Active Substance: FOLIC ACID
  6. POTASSIUM CHLORIDE. [Concomitant]
     Active Substance: POTASSIUM CHLORIDE
  7. SILDENAFIL. [Concomitant]
     Active Substance: SILDENAFIL
  8. TREPROSTINIL [Concomitant]
     Active Substance: TREPROSTINIL
  9. DIGOXIN. [Concomitant]
     Active Substance: DIGOXIN
  10. OXYGEN. [Concomitant]
     Active Substance: OXYGEN
  11. IPRATROPIUM [Concomitant]
     Active Substance: IPRATROPIUM
  12. CHOLECALCIFEROL [Concomitant]
     Active Substance: CHOLECALCIFEROL
  13. AMBRISENTAN [Suspect]
     Active Substance: AMBRISENTAN
     Indication: SLEEP APNOEA SYNDROME
  14. ACETAMINOPHEN. [Concomitant]
     Active Substance: ACETAMINOPHEN
  15. AMBRISENTAN [Suspect]
     Active Substance: AMBRISENTAN
     Indication: SYSTEMIC LUPUS ERYTHEMATOSUS
  16. BENZONATATE. [Concomitant]
     Active Substance: BENZONATATE
  17. FERROUS SULFATE. [Concomitant]
     Active Substance: FERROUS SULFATE
  18. MONTELUKAST [Concomitant]
     Active Substance: MONTELUKAST SODIUM
  19. PLAQUENIL                          /00072602/ [Concomitant]
     Active Substance: HYDROXYCHLOROQUINE DIPHOSPHATE
  20. AMBRISENTAN [Suspect]
     Active Substance: AMBRISENTAN
     Indication: PULMONARY HYPERTENSION
     Dosage: 5 MG, UNK
     Route: 048
     Dates: start: 20110421
  21. FAMOTIDINE. [Concomitant]
     Active Substance: FAMOTIDINE
  22. WARFARIN [Concomitant]
     Active Substance: WARFARIN

REACTIONS (9)
  - Headache [Unknown]
  - Supraventricular tachycardia [Unknown]
  - Dizziness [Unknown]
  - Systemic lupus erythematosus [Unknown]
  - Nasopharyngitis [Recovered/Resolved]
  - Fatigue [Unknown]
  - Hypokalaemia [Recovered/Resolved]
  - Pulmonary oedema [Recovered/Resolved]
  - Upper respiratory tract infection [Unknown]

NARRATIVE: CASE EVENT DATE: 20150330
